FAERS Safety Report 11108366 (Version 1)
Quarter: 2015Q2

REPORT INFORMATION
  Report Type: Spontaneous
  Country: DE (occurrence: DE)
  Receive Date: 20150512
  Receipt Date: 20150512
  Transmission Date: 20150821
  Serious: Yes (Other)
  Sender: FDA-Public Use
  Company Number: GXKR2015DE002402

PATIENT

DRUGS (7)
  1. FOLSAEURE [Concomitant]
     Active Substance: FOLIC ACID
     Indication: PROPHYLAXIS OF NEURAL TUBE DEFECT
     Route: 048
  2. SUMATRIPTAN. [Suspect]
     Active Substance: SUMATRIPTAN
     Indication: MIGRAINE
     Dosage: UNK, PRN, SEVERAL TIMES DURING PREGNANCY
     Route: 048
  3. NOVALGIN [Suspect]
     Active Substance: METAMIZOLE SODIUM
     Dosage: 1000 MG ON 3 FOLLOWING DAYS: GW 36+0 TO 36+2
     Route: 048
  4. SUMATRIPTAN. [Suspect]
     Active Substance: SUMATRIPTAN
     Dosage: 100 MG ON 3 FOLLOWING DAYS: GW 36+0 TO 36+2
  5. PARACETAMOL [Concomitant]
     Active Substance: ACETAMINOPHEN
     Indication: MIGRAINE
     Dosage: UKN MG, PRN, SEVERAL TIMES DURING PREGNANCY
     Route: 048
  6. NOVALGIN [Suspect]
     Active Substance: METAMIZOLE SODIUM
     Indication: MIGRAINE
     Dosage: UKN MG, PRN, SEVERAL TIMES DURING PREGNANCY
     Route: 048
  7. PARACETAMOL [Concomitant]
     Active Substance: ACETAMINOPHEN
     Dosage: 1000 MG ON 3 FOLLOWING DAYS: GW 36+0 TO 36+2
     Route: 048

REACTIONS (1)
  - Foetal death [Recovered/Resolved]
